FAERS Safety Report 12925799 (Version 1)
Quarter: 2016Q4

REPORT INFORMATION
  Report Type: Spontaneous
  Country: US (occurrence: US)
  Receive Date: 20161108
  Receipt Date: 20161108
  Transmission Date: 20170207
  Serious: No
  Sender: FDA-Public Use
  Company Number: US-SA-2016SA188501

PATIENT
  Age: 68 Year
  Sex: Female

DRUGS (6)
  1. ALIROCUMAB PREFILLED PEN [Concomitant]
     Active Substance: ALIROCUMAB
  2. PRALUENT [Suspect]
     Active Substance: ALIROCUMAB
     Route: 065
     Dates: start: 201605
  3. ALIROCUMAB PREFILLED PEN [Concomitant]
     Active Substance: ALIROCUMAB
     Dates: start: 201605
  4. CRESTOR [Concomitant]
     Active Substance: ROSUVASTATIN CALCIUM
     Dosage: STRENGTH: 2.5 MG
  5. ZETIA [Concomitant]
     Active Substance: EZETIMIBE
     Dosage: STRENGTH: 10 MG
  6. PRALUENT [Suspect]
     Active Substance: ALIROCUMAB
     Route: 065

REACTIONS (2)
  - Low density lipoprotein increased [Unknown]
  - Nausea [Unknown]

NARRATIVE: CASE EVENT DATE: 2016
